FAERS Safety Report 20189359 (Version 2)
Quarter: 2022Q1

REPORT INFORMATION
  Report Type: Spontaneous
  Country: IN (occurrence: IN)
  Receive Date: 20211215
  Receipt Date: 20220118
  Transmission Date: 20220423
  Serious: Yes (Death, Other)
  Sender: FDA-Public Use
  Company Number: IN-PFIZER INC-2020457859

PATIENT
  Age: 78 Year
  Sex: Male

DRUGS (1)
  1. SUTENT [Suspect]
     Active Substance: SUNITINIB MALATE
     Indication: Metastatic renal cell carcinoma
     Dosage: 50 MG ONCE A DAY FOR 2 WEEKS AND 1 WEEK OFF
     Route: 048
     Dates: start: 20200928, end: 20210402

REACTIONS (4)
  - Cerebral haemorrhage [Fatal]
  - Neoplasm progression [Fatal]
  - Cardiac disorder [Fatal]
  - Thyroid disorder [Fatal]
